FAERS Safety Report 19207400 (Version 1)
Quarter: 2021Q2

REPORT INFORMATION
  Report Type: Spontaneous
  Country: CN (occurrence: CN)
  Receive Date: 20210503
  Receipt Date: 20210503
  Transmission Date: 20210717
  Serious: Yes (Death)
  Sender: FDA-Public Use
  Company Number: CN-FRESENIUS KABI-FK202104423

PATIENT
  Age: 20 Year
  Sex: Male

DRUGS (14)
  1. METHYLPREDNISOLONE (MANUFACTURER UNKNOWN) [Suspect]
     Active Substance: METHYLPREDNISOLONE
     Route: 042
  2. METHYLPREDNISOLONE (MANUFACTURER UNKNOWN) [Suspect]
     Active Substance: METHYLPREDNISOLONE
     Indication: COVID-19
     Route: 042
  3. CEFOPERAZONE SODIUM/SULBACTAM SODIUM [Concomitant]
     Active Substance: CEFOPERAZONE SODIUM\SULBACTAM SODIUM
     Indication: COVID-19
     Route: 065
  4. UMIFENOVIR. [Concomitant]
     Active Substance: UMIFENOVIR
     Indication: COVID-19
     Route: 065
  5. AMBROXOL HYDROCHLORIDE [Concomitant]
     Active Substance: AMBROXOL HYDROCHLORIDE
     Indication: COVID-19
     Route: 065
  6. LINEZOLID. [Concomitant]
     Active Substance: LINEZOLID
     Indication: COVID-19
     Route: 065
  7. DEXAMETHASONE INJECTION (MANUFACTURER UNKNOWN) [Suspect]
     Active Substance: DEXAMETHASONE
     Indication: COVID-19
     Route: 065
  8. REMDESIVIR. [Concomitant]
     Active Substance: REMDESIVIR
     Route: 042
  9. RUXOLITINIB [Concomitant]
     Active Substance: RUXOLITINIB
     Indication: PROPHYLAXIS AGAINST GRAFT VERSUS HOST DISEASE
     Route: 048
  10. REMDESIVIR. [Concomitant]
     Active Substance: REMDESIVIR
     Indication: COVID-19
     Route: 042
  11. METHYLPREDNISOLONE (MANUFACTURER UNKNOWN) [Suspect]
     Active Substance: METHYLPREDNISOLONE
     Route: 042
  12. MAGNESIUM ISOGLYCYRRHIZINATE [Concomitant]
     Active Substance: MAGNESIUM ISOGLYCYRRHIZINATE
     Indication: COVID-19
     Route: 065
  13. MEROPENEM. [Concomitant]
     Active Substance: MEROPENEM
     Indication: INFECTION PROPHYLAXIS
     Route: 065
  14. THYMALFASIN [Concomitant]
     Active Substance: THYMALFASIN
     Indication: COVID-19
     Route: 065

REACTIONS (2)
  - Septic shock [Fatal]
  - Multiple organ dysfunction syndrome [Fatal]
